FAERS Safety Report 12957946 (Version 1)
Quarter: 2016Q4

REPORT INFORMATION
  Report Type: Spontaneous
  Country: US (occurrence: US)
  Receive Date: 20161118
  Receipt Date: 20161118
  Transmission Date: 20170207
  Serious: No
  Sender: FDA-Public Use
  Company Number: US-AQUA PHARMACEUTICALS-2016AQU000212

PATIENT
  Age: 46 Year
  Sex: Female

DRUGS (1)
  1. VERDESO [Suspect]
     Active Substance: DESONIDE
     Indication: SKIN INJURY
     Dosage: UNK, QD
     Route: 061
     Dates: start: 201607, end: 201607

REACTIONS (2)
  - Fluid retention [Not Recovered/Not Resolved]
  - Weight increased [Not Recovered/Not Resolved]

NARRATIVE: CASE EVENT DATE: 20160727
